FAERS Safety Report 17429153 (Version 1)
Quarter: 2020Q1

REPORT INFORMATION
  Report Type: Spontaneous
  Country: US (occurrence: US)
  Receive Date: 20200203
  Receipt Date: 20200203
  Transmission Date: 20200409
  Serious: Yes (Hospitalization)
  Sender: FDA-Public Use
  Company Number: None

PATIENT
  Sex: Female

DRUGS (20)
  1. INCRUSE ELPT [Concomitant]
  2. ENBREL [Suspect]
     Active Substance: ETANERCEPT
     Indication: RHEUMATOID ARTHRITIS
     Route: 058
     Dates: start: 201508
  3. BONIVA [Concomitant]
     Active Substance: IBANDRONATE SODIUM
  4. MULTI-VITAMIN [Concomitant]
     Active Substance: .ALPHA.-TOCOPHEROL ACETATE, DL-\ASCORBIC ACID\CYANOCOBALAMIN\FLUORIDE ION\FOLIC ACID\NIACIN\PYRIDOXINE\RIBOFLAVIN\THIAMINE\VITAMIN A\VITAMIN D
  5. PREDNISONE. [Concomitant]
     Active Substance: PREDNISONE
  6. SYNTHROID [Concomitant]
     Active Substance: LEVOTHYROXINE SODIUM
  7. PLAQUENIL [Concomitant]
     Active Substance: HYDROXYCHLOROQUINE SULFATE
  8. POTASSIUM [Concomitant]
     Active Substance: POTASSIUM
  9. PRILOSEC [Concomitant]
     Active Substance: OMEPRAZOLE MAGNESIUM
  10. SINGULAIR [Concomitant]
     Active Substance: MONTELUKAST SODIUM
  11. DIOVAN [Concomitant]
     Active Substance: VALSARTAN
  12. EVOXAC [Concomitant]
     Active Substance: CEVIMELINE HYDROCHLORIDE
  13. CLARINEX [Concomitant]
     Active Substance: DESLORATADINE
  14. LOPRESSOR [Concomitant]
     Active Substance: METOPROLOL TARTRATE
  15. NORVASC [Concomitant]
     Active Substance: AMLODIPINE BESYLATE
  16. TRELEGY AER ELLIPTA [Concomitant]
  17. FLONASE ALGY SPR [Concomitant]
  18. LASIX [Concomitant]
     Active Substance: FUROSEMIDE
  19. RA CALCIUM [Concomitant]
  20. CALCIUM [Concomitant]
     Active Substance: CALCIUM

REACTIONS (2)
  - Therapy cessation [None]
  - Hospitalisation [None]
